FAERS Safety Report 20456927 (Version 1)
Quarter: 2022Q1

REPORT INFORMATION
  Report Type: Spontaneous
  Country: US (occurrence: US)
  Receive Date: 20220210
  Receipt Date: 20220210
  Transmission Date: 20220423
  Serious: No
  Sender: FDA-Public Use
  Company Number: US-PERRIGO-21US003532

PATIENT
  Sex: Female
  Weight: 60.771 kg

DRUGS (2)
  1. CETIRIZINE HYDROCHLORIDE [Suspect]
     Active Substance: CETIRIZINE HYDROCHLORIDE
     Indication: Prophylaxis
     Dosage: 1/2 TABLET, QD
     Route: 048
     Dates: start: 2019, end: 20210309
  2. CETIRIZINE HYDROCHLORIDE [Suspect]
     Active Substance: CETIRIZINE HYDROCHLORIDE
     Indication: Idiopathic urticaria
     Dosage: 10 MG, QD
     Route: 048
     Dates: end: 2019

REACTIONS (5)
  - Product administered to patient of inappropriate age [Recovered/Resolved]
  - Off label use [Recovered/Resolved]
  - Expired product administered [Recovered/Resolved]
  - Incorrect dose administered [Recovered/Resolved]
  - Wrong technique in product usage process [Recovered/Resolved]

NARRATIVE: CASE EVENT DATE: 20190101
